FAERS Safety Report 23102096 (Version 1)
Quarter: 2023Q4

REPORT INFORMATION
  Report Type: Spontaneous
  Country: FR (occurrence: None)
  Receive Date: 20231025
  Receipt Date: 20231025
  Transmission Date: 20240109
  Serious: Yes (Hospitalization)
  Sender: FDA-Public Use
  Company Number: FR-Orion Corporation ORION PHARMA-TREX2023-0251

PATIENT
  Age: 82 Year
  Sex: Female
  Weight: 67 kg

DRUGS (5)
  1. METHOTREXATE SODIUM [Suspect]
     Active Substance: METHOTREXATE SODIUM
     Indication: Rheumatoid arthritis
     Dates: start: 201702, end: 20211117
  2. PREDNISONE [Concomitant]
     Active Substance: PREDNISONE
     Dosage: 7 MG 7 MG FOR 1 MONTH THEN 6 MG FOR 1 MONTH THEN 5 MG CONTINUOUSLY., EVERY 24
     Dates: start: 2002, end: 2005
  3. PREDNISONE [Concomitant]
     Active Substance: PREDNISONE
     Dosage: 7 MG 7 MG FOR 1 MONTH THEN 6 MG FOR 1 MONTH THEN 5 MG CONTINUOUSLY., EVERY 24
     Dates: start: 2008, end: 2009
  4. PREDNISONE [Concomitant]
     Active Substance: PREDNISONE
     Dosage: 7 MG 7 MG FOR 1 MONTH THEN 6 MG FOR 1 MONTH THEN 5 MG CONTINUOUSLY., EVERY 24
     Dates: start: 201702
  5. FOLIC ACID [Concomitant]
     Active Substance: FOLIC ACID

REACTIONS (1)
  - Osteoporotic fracture [Recovering/Resolving]

NARRATIVE: CASE EVENT DATE: 20170501
